FAERS Safety Report 11631745 (Version 2)
Quarter: 2015Q4

REPORT INFORMATION
  Report Type: Spontaneous
  Country: CA (occurrence: CA)
  Receive Date: 20151015
  Receipt Date: 20151026
  Transmission Date: 20160304
  Serious: Yes (Hospitalization, Other)
  Sender: FDA-Public Use
  Company Number: CA-ROCHE-1645938

PATIENT
  Age: 16 Year
  Sex: Female

DRUGS (6)
  1. AERIUS (CANADA) [Concomitant]
  2. PREDNISONE. [Suspect]
     Active Substance: PREDNISONE
     Indication: ASTHMA
     Dosage: 7 COURSES OVER 9 MONTHS
     Route: 048
  3. ZENHALE [Concomitant]
     Active Substance: FORMOTEROL FUMARATE\MOMETASONE FUROATE
  4. XOLAIR [Suspect]
     Active Substance: OMALIZUMAB
     Indication: ASTHMA
     Route: 058
     Dates: start: 201507, end: 201509
  5. SINGULAIR [Concomitant]
     Active Substance: MONTELUKAST SODIUM
  6. NASONEX [Concomitant]
     Active Substance: MOMETASONE FUROATE
     Route: 065

REACTIONS (6)
  - Hypersensitivity [Unknown]
  - Abasia [Unknown]
  - Blood immunoglobulin E increased [Unknown]
  - Eosinophil count increased [Recovering/Resolving]
  - Allodynia [Unknown]
  - Pain in extremity [Unknown]

NARRATIVE: CASE EVENT DATE: 201509
